FAERS Safety Report 8988669 (Version 1)
Quarter: 2012Q4

REPORT INFORMATION
  Report Type: Spontaneous
  Country: US (occurrence: None)
  Receive Date: 20121218
  Receipt Date: 20121218
  Transmission Date: 20130627
  Serious: No
  Sender: FDA-Public Use
  Company Number: 2012P1066651

PATIENT
  Age: 59 Year
  Sex: Female

DRUGS (5)
  1. INFUMORPH [Suspect]
     Indication: PAIN
  2. BACLOFEN [Suspect]
     Indication: PAIN
  3. BUPIVACAINE (NO PREF. NAME) [Suspect]
     Indication: PAIN
  4. MORPHINE [Suspect]
     Indication: PAIN
  5. BACLOFEN [Suspect]
     Indication: PAIN

REACTIONS (7)
  - Drug withdrawal syndrome [None]
  - Device malfunction [None]
  - Pain [None]
  - Agitation [None]
  - Hyperhidrosis [None]
  - Mental status changes [None]
  - Therapeutic response decreased [None]
